FAERS Safety Report 25975322 (Version 2)
Quarter: 2025Q4

REPORT INFORMATION
  Report Type: Report from Study
  Country: JP (occurrence: JP)
  Receive Date: 20251029
  Receipt Date: 20251119
  Transmission Date: 20260118
  Serious: Yes (Other)
  Sender: PFIZER
  Company Number: JP-PFIZER INC-PV202500127265

PATIENT
  Age: 22 Year
  Sex: Male

DRUGS (2)
  1. SIROLIMUS [Suspect]
     Active Substance: SIROLIMUS
     Indication: Malformation venous
     Dosage: 2 MG, 1X/DAY
     Route: 048
     Dates: start: 20240416, end: 20240822
  2. SIROLIMUS [Suspect]
     Active Substance: SIROLIMUS
     Dosage: 2 MG, 1X/DAY
     Route: 048
     Dates: start: 20241022

REACTIONS (2)
  - Physical deconditioning [Recovering/Resolving]
  - Stomatitis [Recovered/Resolved]

NARRATIVE: CASE EVENT DATE: 20240822
